FAERS Safety Report 5963810-5 (Version None)
Quarter: 2008Q4

REPORT INFORMATION
  Report Type: 
  Country: None (occurrence: None)
  Receive Date: 20081124
  Receipt Date: 20081119
  Transmission Date: 20090506
  Serious: Yes (Disabling)
  Sender: FDA-Public Use
  Company Number: GB-BRISTOL-MYERS SQUIBB COMPANY-14413470

PATIENT
  Age: 43 Year
  Sex: Female

DRUGS (4)
  1. ARIPIPRAZOLE [Suspect]
     Indication: BIPOLAR DISORDER
     Route: 048
     Dates: start: 20080820, end: 20081010
  2. ARIPIPRAZOLE [Concomitant]
     Route: 042
  3. RISPERDAL CONSTA [Concomitant]
     Indication: BIPOLAR DISORDER
     Route: 030
     Dates: start: 20060101
  4. VALPROATE SODIUM [Concomitant]
     Indication: BIPOLAR DISORDER
     Route: 048
     Dates: start: 20060101

REACTIONS (2)
  - BALANCE DISORDER [None]
  - MUSCULAR WEAKNESS [None]
